FAERS Safety Report 12471155 (Version 4)
Quarter: 2016Q3

REPORT INFORMATION
  Report Type: Spontaneous
  Country: ES (occurrence: ES)
  Receive Date: 20160616
  Receipt Date: 20160808
  Transmission Date: 20161109
  Serious: Yes (Hospitalization, Other)
  Sender: FDA-Public Use
  Company Number: ES-AMGEN-ESPSP2016053565

PATIENT
  Age: 76 Year
  Sex: Female

DRUGS (7)
  1. ENBREL [Suspect]
     Active Substance: ETANERCEPT
     Indication: RHEUMATOID ARTHRITIS
     Dosage: 50 MG, WEEKLY (ON FRIDAYS)
     Route: 058
     Dates: start: 20160314, end: 201605
  2. DOLQUINE [Concomitant]
     Active Substance: HYDROXYCHLOROQUINE SULFATE
     Indication: PAIN
     Dosage: 200 MG, 1X/DAY
  3. DACORTIN [Concomitant]
     Active Substance: PREDNISONE
     Indication: PAIN
     Dosage: 5 MG, 1X/DAY
  4. MASTICAL D [Concomitant]
     Indication: OSTEOPOROSIS
     Dosage: 1000 MG, 1X/DAY
  5. MASTICAL D [Concomitant]
     Indication: VITAMIN D DEFICIENCY
  6. DACORTIN [Concomitant]
     Active Substance: PREDNISONE
     Indication: INFLAMMATION
  7. CEMIDON B6 [Concomitant]
     Active Substance: ISONIAZID\PYRIDOXINE HYDROCHLORIDE
     Indication: TUBERCULIN TEST POSITIVE
     Dosage: 300 MG, 1X/DAY

REACTIONS (9)
  - Injection site erythema [Recovered/Resolved]
  - Diabetes mellitus [Not Recovered/Not Resolved]
  - Injection site pruritus [Recovered/Resolved]
  - Pneumonitis [Recovered/Resolved]
  - Injection site pain [Recovered/Resolved]
  - Inflammation [Unknown]
  - Blood glucose increased [Not Recovered/Not Resolved]
  - Injection site urticaria [Recovered/Resolved]
  - Drug ineffective [Unknown]

NARRATIVE: CASE EVENT DATE: 2016
